FAERS Safety Report 9233964 (Version 1)
Quarter: 2013Q2

REPORT INFORMATION
  Report Type: Spontaneous
  Country: US (occurrence: US)
  Receive Date: 20130416
  Receipt Date: 20130416
  Transmission Date: 20140414
  Serious: No
  Sender: FDA-Public Use
  Company Number: US-BANPHARM-20120442

PATIENT
  Age: 65 Year
  Sex: Male
  Weight: 92.99 kg

DRUGS (2)
  1. ALEVE LIQUID GELS 220MG [Suspect]
     Indication: BACK PAIN
     Dosage: 1 DF, ONCE,
     Route: 048
     Dates: start: 20121209, end: 20121209
  2. HIGH CHOLESTEROL MEDICATION [Concomitant]

REACTIONS (1)
  - Nausea [Not Recovered/Not Resolved]
